FAERS Safety Report 8361107 (Version 2)
Quarter: 2013Q1

REPORT INFORMATION
  Report Type: Report from Study
  Country: US (occurrence: US)
  Receive Date: 20120128
  Receipt Date: 20130129
  Transmission Date: 20140127
  Serious: No
  Sender: FDA-Public Use
  Company Number: US-ABBOTT-11P-163-0841024-00

PATIENT
  Age: 45 Year
  Sex: Female

DRUGS (6)
  1. HUMIRA 40 MG/0.8 ML PEN [Suspect]
     Indication: PSORIASIS
     Dates: start: 201105
  2. LOESTRIN [Concomitant]
     Indication: ENDOMETRIOSIS
     Route: 048
     Dates: start: 2009
  3. IMPLANON [Concomitant]
     Indication: ENDOMETRIOSIS
     Route: 048
     Dates: start: 2009
  4. SAVELLA [Concomitant]
     Indication: FIBROMYALGIA
     Route: 048
  5. CLOBETASOL [Concomitant]
     Indication: PSORIASIS
     Route: 061
  6. MOTRIN [Concomitant]
     Indication: PRODUCT USED FOR UNKNOWN INDICATION

REACTIONS (20)
  - Arthralgia [Not Recovered/Not Resolved]
  - Nerve compression [Unknown]
  - Local swelling [Unknown]
  - Pain in extremity [Unknown]
  - Glaucoma [Unknown]
  - Injection site pain [Unknown]
  - Fall [Unknown]
  - Arthralgia [Unknown]
  - Contusion [Unknown]
  - Pain in extremity [Unknown]
  - Pain in extremity [Unknown]
  - Neck pain [Recovering/Resolving]
  - Drug ineffective [Unknown]
  - Onychoclasis [Unknown]
  - Pain in extremity [Unknown]
  - Local swelling [Unknown]
  - Epicondylitis [Unknown]
  - Abdominal pain [Unknown]
  - Pelvic pain [Unknown]
  - Crohn^s disease [Unknown]
